FAERS Safety Report 15880364 (Version 3)
Quarter: 2019Q1

REPORT INFORMATION
  Report Type: Report from Study
  Country: BE (occurrence: BE)
  Receive Date: 20190128
  Receipt Date: 20190305
  Transmission Date: 20190417
  Serious: Yes (Hospitalization, Other)
  Sender: FDA-Public Use
  Company Number: BE-PFIZER INC-2018462090

PATIENT
  Age: 68 Year
  Sex: Male
  Weight: 67 kg

DRUGS (9)
  1. FLUOROURACIL. [Suspect]
     Active Substance: FLUOROURACIL
     Indication: COLORECTAL CANCER METASTATIC
     Dosage: 5096 MG, CYCLIC (EVERY TWO WEEKS)
     Route: 042
     Dates: start: 20180405, end: 20181213
  2. IRINOTECAN HCL [Suspect]
     Active Substance: IRINOTECAN HYDROCHLORIDE
     Indication: COLORECTAL CANCER METASTATIC
     Dosage: 328 MG, CYCLIC  (EVERY TWO WEEKS)
     Route: 042
     Dates: start: 20180405, end: 20181213
  3. BEVACIZUMAB. [Suspect]
     Active Substance: BEVACIZUMAB
     Indication: COLORECTAL CANCER METASTATIC
     Dosage: 335 MG, CYCLIC (EVERY TWO WEEKS)
     Route: 042
     Dates: start: 20180419
  4. IMODIUM [Concomitant]
     Active Substance: LOPERAMIDE HYDROCHLORIDE
  5. ASAFLOW [Concomitant]
     Active Substance: ASPIRIN
     Dosage: UNK
     Route: 065
     Dates: start: 20160516
  6. LEUCOVORIN [CALCIUM FOLINATE] [Suspect]
     Active Substance: LEUCOVORIN
     Indication: COLORECTAL CANCER METASTATIC
     Dosage: 5096 MG, CYCLIC (EVERY TWO WEEKS)
     Route: 042
     Dates: start: 20180405, end: 20181213
  7. BEVACIZUMAB. [Suspect]
     Active Substance: BEVACIZUMAB
     Dosage: 335 MG, CYCLIC (EVERY TWO WEEKS)
     Route: 042
     Dates: start: 20181004, end: 20181004
  8. TRIPLIXAM [Concomitant]
     Active Substance: AMLODIPINE BESYLATE\INDAPAMIDE\PERINDOPRIL ARGININE
  9. ZOCOR [Concomitant]
     Active Substance: SIMVASTATIN

REACTIONS (10)
  - Pain [Not Recovered/Not Resolved]
  - Oedema peripheral [Recovering/Resolving]
  - Hypokalaemia [Recovered/Resolved]
  - Ascites [Recovering/Resolving]
  - C-reactive protein increased [Not Recovered/Not Resolved]
  - Pulmonary embolism [Recovering/Resolving]
  - Deep vein thrombosis [Recovering/Resolving]
  - Neutropenia [Recovered/Resolved]
  - Abdominal pain lower [Not Recovered/Not Resolved]
  - Hypoalbuminaemia [Not Recovered/Not Resolved]

NARRATIVE: CASE EVENT DATE: 20181014
